FAERS Safety Report 7901581-3 (Version None)
Quarter: 2011Q4

REPORT INFORMATION
  Report Type: 
  Country: None (occurrence: None)
  Receive Date: 20111108
  Receipt Date: 20111101
  Transmission Date: 20120403
  Serious: Yes (Hospitalization)
  Sender: FDA-Public Use
  Company Number: DE-UCBSA-044698

PATIENT
  Sex: Female

DRUGS (3)
  1. VIMPAT [Suspect]
     Dosage: INITIATION PHASE (UPTITRATION OF 3 MG/KG BODY WEIGHT/WEEK)
  2. OXCARBAZEPINE [Concomitant]
     Dosage: UNKNOWN DOSAGE
  3. OSPOLOT [Concomitant]
     Dosage: UNKNOWN DOSAGE

REACTIONS (3)
  - CONVULSION [None]
  - CYANOSIS [None]
  - DYSPNOEA [None]
